FAERS Safety Report 10060969 (Version 1)
Quarter: 2014Q2

REPORT INFORMATION
  Report Type: Spontaneous
  Country: DK (occurrence: DK)
  Receive Date: 20140405
  Receipt Date: 20140405
  Transmission Date: 20141212
  Serious: Yes (Other)
  Sender: FDA-Public Use
  Company Number: DK-GE HEALTHCARE MEDICAL DIAGNOSTICS-OSCN-PR-1312S-0170

PATIENT
  Sex: Male

DRUGS (1)
  1. GADOVIST [Suspect]
     Indication: NEUROPATHY PERIPHERAL
     Dates: start: 20080619, end: 20080619

REACTIONS (1)
  - Nephrogenic systemic fibrosis [Not Recovered/Not Resolved]
